FAERS Safety Report 25541112 (Version 1)
Quarter: 2025Q3

REPORT INFORMATION
  Report Type: Report from Study
  Country: CO (occurrence: CO)
  Receive Date: 20250710
  Receipt Date: 20250710
  Transmission Date: 20251021
  Serious: No
  Sender: TAKEDA
  Company Number: CO-TAKEDA-2022TUS025081

PATIENT
  Age: 10 Year
  Sex: Female
  Weight: 30 kg

DRUGS (3)
  1. HUMAN IMMUNOGLOBULIN G\HYALURONIDASE RECOMBINANT HUMAN [Suspect]
     Active Substance: HUMAN IMMUNOGLOBULIN G\HYALURONIDASE (HUMAN RECOMBINANT)
     Indication: Primary immunodeficiency syndrome
  2. HUMAN IMMUNOGLOBULIN G\HYALURONIDASE RECOMBINANT HUMAN [Suspect]
     Active Substance: HUMAN IMMUNOGLOBULIN G\HYALURONIDASE (HUMAN RECOMBINANT)
     Indication: Immunodeficiency
     Dosage: 25 GRAM, MONTHLY
     Dates: start: 20220401
  3. HUMAN IMMUNOGLOBULIN G\HYALURONIDASE RECOMBINANT HUMAN [Suspect]
     Active Substance: HUMAN IMMUNOGLOBULIN G\HYALURONIDASE (HUMAN RECOMBINANT)

REACTIONS (49)
  - Infusion related reaction [Recovering/Resolving]
  - Discouragement [Recovering/Resolving]
  - Vulvovaginal erythema [Unknown]
  - Cyanosis [Recovering/Resolving]
  - Pain [Recovered/Resolved]
  - Weight increased [Unknown]
  - Body height increased [Unknown]
  - Application site erythema [Unknown]
  - Product prescribing error [Unknown]
  - Product administration error [Unknown]
  - Pyrexia [Recovering/Resolving]
  - Headache [Recovering/Resolving]
  - Illness [Recovering/Resolving]
  - Respiratory tract infection viral [Recovering/Resolving]
  - Inappropriate schedule of product administration [Unknown]
  - Cough [Recovering/Resolving]
  - Back pain [Recovering/Resolving]
  - Treatment noncompliance [Unknown]
  - Muscle disorder [Recovered/Resolved]
  - Bone pain [Recovered/Resolved]
  - Discomfort [Recovered/Resolved]
  - Aggression [Unknown]
  - Depression [Unknown]
  - Hypersomnia [Unknown]
  - Mood swings [Unknown]
  - Boredom [Not Recovered/Not Resolved]
  - Loss of personal independence in daily activities [Not Recovered/Not Resolved]
  - Eating disorder [Not Recovered/Not Resolved]
  - Pharyngitis [Recovering/Resolving]
  - Skin fissures [Unknown]
  - Skin lesion [Unknown]
  - Furuncle [Unknown]
  - Dengue fever [Recovering/Resolving]
  - Viral infection [Recovered/Resolved]
  - Insurance issue [Unknown]
  - Product availability issue [Unknown]
  - Product dose omission issue [Unknown]
  - Product use issue [Unknown]
  - Decreased appetite [Recovering/Resolving]
  - Irritability [Unknown]
  - Insomnia [Unknown]
  - Dermatitis [Recovering/Resolving]
  - Tachycardia [Recovered/Resolved]
  - Malaise [Recovering/Resolving]
  - Abdominal pain [Recovering/Resolving]
  - Diarrhoea [Recovering/Resolving]
  - Feeling hot [Recovering/Resolving]
  - Arthralgia [Recovering/Resolving]
  - Nausea [Recovering/Resolving]

NARRATIVE: CASE EVENT DATE: 20220401
